FAERS Safety Report 21093942 (Version 1)
Quarter: 2022Q3

REPORT INFORMATION
  Report Type: Spontaneous
  Country: US (occurrence: US)
  Receive Date: 20220718
  Receipt Date: 20220718
  Transmission Date: 20221026
  Serious: No
  Sender: FDA-Public Use
  Company Number: US-SA-SAC20220711000748

PATIENT
  Sex: Female
  Weight: 73.799 kg

DRUGS (6)
  1. DUPIXENT [Suspect]
     Active Substance: DUPILUMAB
     Indication: Dermatitis atopic
     Dosage: 300 MG QOW
     Route: 058
     Dates: start: 20220514
  2. SEMGLEE [INSULIN GLARGINE YFGN] [Concomitant]
  3. HUMALOG [Concomitant]
     Active Substance: INSULIN LISPRO
  4. FLUOCINONIDE [Concomitant]
     Active Substance: FLUOCINONIDE
  5. CYCLOSPORINE [Concomitant]
     Active Substance: CYCLOSPORINE
  6. IBUPROFEN [Concomitant]
     Active Substance: IBUPROFEN

REACTIONS (11)
  - Cough [Unknown]
  - Fatigue [Unknown]
  - Asthenia [Unknown]
  - Migraine [Unknown]
  - Visual impairment [Unknown]
  - Dizziness [Unknown]
  - Dyspnoea [Unknown]
  - Nail cuticle fissure [Unknown]
  - Nail bed bleeding [Unknown]
  - Onychalgia [Unknown]
  - Dry eye [Unknown]

NARRATIVE: CASE EVENT DATE: 20220101
